FAERS Safety Report 19447119 (Version 1)
Quarter: 2021Q2

REPORT INFORMATION
  Report Type: Spontaneous
  Country: US (occurrence: US)
  Receive Date: 20210621
  Receipt Date: 20210621
  Transmission Date: 20210717
  Serious: Yes (Hospitalization)
  Sender: FDA-Public Use
  Company Number: None

PATIENT
  Sex: Male

DRUGS (16)
  1. CLONAZEPMA TAB 2 MG [Concomitant]
     Dates: start: 20210414
  2. SYNTHROID TAB 200MCG [Concomitant]
     Dates: start: 20210401
  3. ECITALOPRAM TAB 20MG [Concomitant]
     Dates: start: 20210305
  4. WELLBUTRIN TAB XL 150MG [Concomitant]
     Dates: start: 20210426
  5. CLONAZEPAM TAB 1MG [Concomitant]
     Active Substance: CLONAZEPAM
     Dates: start: 20210520
  6. FLUTICASONE SPR 50MCG [Concomitant]
     Active Substance: FLUTICASONE
  7. WARFARIN TAB 2.5MG [Concomitant]
     Active Substance: WARFARIN
     Dates: start: 20210509
  8. TORSEMIDE TAB 20MG [Concomitant]
     Dates: start: 20210521
  9. METOPROL TAR TAB 50MG [Concomitant]
  10. LAMOTRIGINE TAB 200MG [Concomitant]
     Dates: start: 20210507
  11. RAMELTEON TAB 8MG [Concomitant]
     Dates: start: 20210518
  12. GABAPENTIN CAP 300MG [Concomitant]
     Active Substance: GABAPENTIN
     Dates: start: 20210503
  13. VYNDAMAX [Suspect]
     Active Substance: TAFAMIDIS
     Route: 048
     Dates: start: 20200117
  14. POT CHLORIDE TAB 10MEQ ER [Concomitant]
     Dates: start: 20210426
  15. MEMANTINE TAB HCL 5MG [Concomitant]
     Dates: start: 20210429
  16. AMIODARONE TAB 200MG [Concomitant]
     Active Substance: AMIODARONE

REACTIONS (3)
  - Diplegia [None]
  - Arthropathy [None]
  - Product supply issue [None]
